FAERS Safety Report 9398247 (Version 3)
Quarter: 2013Q4

REPORT INFORMATION
  Report Type: Spontaneous
  Country: GB (occurrence: None)
  Receive Date: 20130709
  Receipt Date: 20131125
  Transmission Date: 20140711
  Serious: Yes (Other)
  Sender: FDA-Public Use
  Company Number: AUR-APL-2013-05616

PATIENT
  Age: 66 Year
  Sex: Male
  Weight: 118.9 kg

DRUGS (1)
  1. PERINDOPRIL [Suspect]
     Indication: PRODUCT USED FOR UNKNOWN INDICATION
     Dosage: 4 MG, (4 MG, 1 IN 1 D), ORAL
     Route: 048
     Dates: start: 20100113, end: 20130313

REACTIONS (9)
  - Conjunctivitis [None]
  - Oedema peripheral [None]
  - Dermatitis [None]
  - Cellulitis [None]
  - Skin ulcer [None]
  - Hordeolum [None]
  - Lichen sclerosus [None]
  - Lichen sclerosus [None]
  - Drug ineffective [None]
